FAERS Safety Report 15583896 (Version 3)
Quarter: 2018Q4

REPORT INFORMATION
  Report Type: Spontaneous
  Country: US (occurrence: US)
  Receive Date: 20181105
  Receipt Date: 20181112
  Transmission Date: 20190205
  Serious: Yes (Other)
  Sender: FDA-Public Use
  Company Number: US-ROCHE-2207762

PATIENT
  Age: 75 Year
  Sex: Female

DRUGS (4)
  1. VALIUM [Suspect]
     Active Substance: DIAZEPAM
     Indication: PANIC ATTACK
  2. DIAZEPAM. [Suspect]
     Active Substance: DIAZEPAM
     Dosage: GENERIC
     Route: 065
  3. VALIUM [Suspect]
     Active Substance: DIAZEPAM
     Indication: ANXIETY
     Dosage: ONGOING:NO
     Route: 065
  4. DIAZEPAM. [Suspect]
     Active Substance: DIAZEPAM
     Indication: PRODUCT USED FOR UNKNOWN INDICATION
     Dosage: GENERIC
     Route: 065

REACTIONS (23)
  - Rib fracture [Unknown]
  - Joint dislocation [Unknown]
  - Multiple sclerosis [Unknown]
  - Neck pain [Unknown]
  - Loss of consciousness [Unknown]
  - Skin discolouration [Unknown]
  - Hypercalcaemia [Unknown]
  - Wrist fracture [Unknown]
  - Fall [Unknown]
  - Musculoskeletal stiffness [Unknown]
  - Confusional state [Unknown]
  - Hypothyroidism [Not Recovered/Not Resolved]
  - Meniere^s disease [Unknown]
  - Road traffic accident [Unknown]
  - Memory impairment [Unknown]
  - Vertigo [Unknown]
  - Skin abrasion [Unknown]
  - Malaise [Unknown]
  - Pain [Unknown]
  - Dizziness [Unknown]
  - Stress [Unknown]
  - Balance disorder [Unknown]
  - Hyperparathyroidism [Unknown]

NARRATIVE: CASE EVENT DATE: 2011
